FAERS Safety Report 12556148 (Version 1)
Quarter: 2016Q3

REPORT INFORMATION
  Report Type: Spontaneous
  Country: US (occurrence: US)
  Receive Date: 20160714
  Receipt Date: 20160714
  Transmission Date: 20161109
  Serious: No
  Sender: FDA-Public Use
  Company Number: US-BAYER-2016-130840

PATIENT
  Sex: Male

DRUGS (16)
  1. LEUCOVORIN CALCIUM. [Concomitant]
     Active Substance: LEUCOVORIN CALCIUM
     Dosage: 5 MG, OW
     Route: 048
     Dates: start: 20121102, end: 20121207
  2. OMEPRAZOL [Concomitant]
     Active Substance: OMEPRAZOLE
     Dosage: 20 MG, BID
     Route: 048
     Dates: start: 20160222
  3. CLARITIN [Suspect]
     Active Substance: LORATADINE
     Dosage: UNK
  4. LISINOPRIL. [Concomitant]
     Active Substance: LISINOPRIL
     Dosage: 10 MG, QD
     Route: 048
     Dates: start: 20150629, end: 20151215
  5. SIMVASTATIN. [Concomitant]
     Active Substance: SIMVASTATIN
     Dosage: 40 MG, HS
     Route: 048
     Dates: start: 20151023, end: 20160422
  6. XANAX [Concomitant]
     Active Substance: ALPRAZOLAM
     Dosage: 1 DF, QD AS NEEDED
     Route: 048
     Dates: start: 20160222, end: 20160222
  7. TUDORZA PRESSAIR [Concomitant]
     Active Substance: ACLIDINIUM BROMIDE
     Dosage: 1 INHALATION, BID
     Route: 045
     Dates: start: 20150901
  8. VITAMIN D2 [Concomitant]
     Active Substance: ERGOCALCIFEROL
     Dosage: 1 DF, OW
     Route: 048
     Dates: start: 20141107, end: 20160222
  9. NORCO [Concomitant]
     Active Substance: ACETAMINOPHEN\HYDROCODONE BITARTRATE
     Indication: PAIN
     Dosage: 1 DF(10-325MG), QID AS NEEDED
     Route: 048
     Dates: start: 20160422, end: 20160422
  10. VALACICLOVIR [Concomitant]
     Active Substance: VALACYCLOVIR HYDROCHLORIDE
     Dosage: 500 MG, QD
     Route: 048
     Dates: start: 20151221
  11. METFORMIN [Concomitant]
     Active Substance: METFORMIN HYDROCHLORIDE
     Dosage: 500 MG, BID
     Route: 048
     Dates: start: 20160222, end: 20160621
  12. NICOTINE. [Concomitant]
     Active Substance: NICOTINE
     Dosage: 1 PATCH TO SKIN, QD
     Dates: start: 20130927, end: 20150825
  13. BETAMETHASONE DIPROPIONATE. [Concomitant]
     Active Substance: BETAMETHASONE DIPROPIONATE
     Dosage: 2 PUFF(S) INTO BOTH NOSTRIL, QD
     Dates: start: 20130517, end: 20140711
  14. ZESTORETIC [Concomitant]
     Active Substance: HYDROCHLOROTHIAZIDE\LISINOPRIL
     Dosage: 1 DF (20-12.5MG), QD AS NEEDED
     Route: 048
     Dates: start: 20141028, end: 20160222
  15. CHANTIX [Concomitant]
     Active Substance: VARENICLINE TARTRATE
     Dosage: 1 MG, BID
     Route: 048
  16. HYDROCORTISONE. [Concomitant]
     Active Substance: HYDROCORTISONE
     Dosage: UNK UNK, TID
     Dates: start: 20160422, end: 20160422

REACTIONS (2)
  - Drug hypersensitivity [None]
  - Dry mouth [None]
